FAERS Safety Report 12803415 (Version 1)
Quarter: 2016Q4

REPORT INFORMATION
  Report Type: Spontaneous
  Country: US (occurrence: US)
  Receive Date: 20161003
  Receipt Date: 20161003
  Transmission Date: 20170207
  Serious: No
  Sender: FDA-Public Use
  Company Number: US-009507513-1609USA010138

PATIENT
  Age: 75 Year
  Sex: Female

DRUGS (1)
  1. KEYTRUDA [Suspect]
     Active Substance: PEMBROLIZUMAB
     Indication: ANAL CANCER
     Dosage: 2 MG/KG, Q3W
     Route: 042
     Dates: start: 201606

REACTIONS (3)
  - Arthritis [Unknown]
  - Product use issue [Unknown]
  - Inflammation [Unknown]

NARRATIVE: CASE EVENT DATE: 2016
